FAERS Safety Report 25764291 (Version 1)
Quarter: 2025Q3

REPORT INFORMATION
  Report Type: Spontaneous
  Country: US (occurrence: US)
  Receive Date: 20250905
  Receipt Date: 20250905
  Transmission Date: 20251020
  Serious: No
  Sender: DOMPE FARMACEUTICI
  Company Number: US-FARMAPROD-202412-4308

PATIENT
  Sex: Male

DRUGS (19)
  1. OXERVATE [Suspect]
     Active Substance: CENEGERMIN-BKBJ
     Indication: Neurotrophic keratopathy
     Route: 047
  2. FISH OIL [Concomitant]
     Active Substance: FISH OIL
  3. EYSUVIS [Concomitant]
     Active Substance: LOTEPREDNOL ETABONATE
  4. NIFEDIPINE [Concomitant]
     Active Substance: NIFEDIPINE
  5. ZYRTEC [Concomitant]
     Active Substance: CETIRIZINE HYDROCHLORIDE
  6. LEVOTHYROXINE SODIUM [Concomitant]
     Active Substance: LEVOTHYROXINE SODIUM
  7. CHOLECALCIFEROL [Concomitant]
     Active Substance: CHOLECALCIFEROL
  8. METFORMIN HYDROCHLORIDE [Concomitant]
     Active Substance: METFORMIN HYDROCHLORIDE
  9. ALLOPURINOL [Concomitant]
     Active Substance: ALLOPURINOL
  10. VITAMINS [Concomitant]
     Active Substance: VITAMINS
  11. MOUNJARO [Concomitant]
     Active Substance: TIRZEPATIDE
  12. REPATHA [Concomitant]
     Active Substance: EVOLOCUMAB
  13. FERROUS SULFATE [Concomitant]
     Active Substance: FERROUS SULFATE
  14. MIEBO [Concomitant]
     Active Substance: PERFLUOROHEXYLOCTANE
  15. RESTASIS [Concomitant]
     Active Substance: CYCLOSPORINE
  16. MONTELUKAST SODIUM [Concomitant]
     Active Substance: MONTELUKAST SODIUM
  17. ASPIRIN [Concomitant]
     Active Substance: ASPIRIN
  18. ATORVASTATIN CALCIUM [Concomitant]
     Active Substance: ATORVASTATIN CALCIUM
  19. CARVEDILOL [Concomitant]
     Active Substance: CARVEDILOL

REACTIONS (1)
  - Eye pain [Unknown]
